FAERS Safety Report 9886203 (Version 1)
Quarter: 2014Q1

REPORT INFORMATION
  Report Type: Spontaneous
  Country: US (occurrence: US)
  Receive Date: 20140210
  Receipt Date: 20140210
  Transmission Date: 20141002
  Serious: No
  Sender: FDA-Public Use
  Company Number: US-ENDO PHARMACEUTICALS INC.-PHEN20130018

PATIENT
  Sex: Female
  Weight: 99.88 kg

DRUGS (1)
  1. PHENTERMINE HCL TABLETS [Suspect]
     Indication: WEIGHT INCREASED
     Route: 048

REACTIONS (2)
  - Asthenia [Not Recovered/Not Resolved]
  - Drug ineffective [Not Recovered/Not Resolved]
